FAERS Safety Report 15573330 (Version 1)
Quarter: 2018Q4

REPORT INFORMATION
  Report Type: Spontaneous
  Country: US (occurrence: US)
  Receive Date: 20181101
  Receipt Date: 20181101
  Transmission Date: 20190205
  Serious: Yes (Other)
  Sender: FDA-Public Use
  Company Number: US-CIPLA LTD.-2018US22277

PATIENT

DRUGS (11)
  1. PREDNISOLONE. [Concomitant]
     Active Substance: PREDNISOLONE
     Indication: PRODUCT USED FOR UNKNOWN INDICATION
     Dosage: UNK
     Route: 065
  2. NAPROXEN. [Concomitant]
     Active Substance: NAPROXEN
     Indication: PRODUCT USED FOR UNKNOWN INDICATION
     Dosage: UNK
     Route: 065
  3. OXALIPLATIN. [Suspect]
     Active Substance: OXALIPLATIN
     Indication: METASTATIC LYMPHOMA
     Dosage: UNK, THREE CYCLES
     Route: 065
  4. METHOTREXATE. [Suspect]
     Active Substance: METHOTREXATE
     Indication: METASTATIC LYMPHOMA
     Dosage: UNK
     Route: 037
  5. CYTARABINE. [Suspect]
     Active Substance: CYTARABINE
     Indication: METASTATIC LYMPHOMA
     Dosage: UNK
     Route: 065
  6. GEMCITABINE [Suspect]
     Active Substance: GEMCITABINE\GEMCITABINE HYDROCHLORIDE
     Indication: METASTATIC LYMPHOMA
     Dosage: UNK, THREE CYCLES
     Route: 065
  7. DOXORUBICIN [Suspect]
     Active Substance: DOXORUBICIN
     Indication: METASTATIC LYMPHOMA
     Dosage: UNK, FOUR CYCLES
     Route: 042
  8. CYCLOPHOSPHAMIDE. [Suspect]
     Active Substance: CYCLOPHOSPHAMIDE
     Indication: METASTATIC LYMPHOMA
     Dosage: UNK, FOUR CYCLES
     Route: 042
  9. VINCRISTINE [Suspect]
     Active Substance: VINCRISTINE
     Indication: METASTATIC LYMPHOMA
     Dosage: UNK, FOUR CYCLES
     Route: 042
  10. PREDNISONE. [Suspect]
     Active Substance: PREDNISONE
     Indication: METASTATIC LYMPHOMA
     Dosage: UNK, FOUR CYCLES
     Route: 042
  11. ETOPOSIDE. [Suspect]
     Active Substance: ETOPOSIDE
     Indication: METASTATIC LYMPHOMA
     Dosage: UNK, FOUR CYCLES
     Route: 042

REACTIONS (1)
  - Drug ineffective [Unknown]
